FAERS Safety Report 5426530-1 (Version None)
Quarter: 2007Q3

REPORT INFORMATION
  Report Type: 
  Country: None (occurrence: None)
  Receive Date: 20070731
  Receipt Date: 20070422
  Transmission Date: 20080115
  Serious: No
  Sender: FDA-Public Use
  Company Number: US200704004883

PATIENT
  Age: 65 Year
  Sex: Female

DRUGS (4)
  1. BYETTA [Suspect]
     Indication: TYPE 2 DIABETES MELLITUS
     Dosage: 5 UG,2/D, SUBCUTANEOUS
     Route: 058
     Dates: start: 20070421
  2. ACTOS [Concomitant]
  3. LANTUS [Concomitant]
  4. HUMALOG [Concomitant]

REACTIONS (5)
  - ABDOMINAL PAIN [None]
  - BLOOD GLUCOSE INCREASED [None]
  - FATIGUE [None]
  - MALAISE [None]
  - NAUSEA [None]
